FAERS Safety Report 7039595-0 (Version None)
Quarter: 2010Q4

REPORT INFORMATION
  Report Type: 
  Country: None (occurrence: None)
  Receive Date: 20101012
  Receipt Date: 20101006
  Transmission Date: 20110411
  Serious: Yes (Hospitalization)
  Sender: FDA-Public Use
  Company Number: A0837105A

PATIENT
  Age: 44 Year
  Sex: Male

DRUGS (2)
  1. AVANDIA [Suspect]
     Dosage: 8MG PER DAY
     Route: 048
     Dates: start: 20020101, end: 20060101
  2. AVANDAMET [Suspect]
     Dosage: 1TAB PER DAY
     Dates: start: 20000101, end: 20010101

REACTIONS (1)
  - MYOCARDIAL INFARCTION [None]
